FAERS Safety Report 21906877 (Version 1)
Quarter: 2023Q1

REPORT INFORMATION
  Report Type: Spontaneous
  Country: US (occurrence: US)
  Receive Date: 20230125
  Receipt Date: 20230125
  Transmission Date: 20230418
  Serious: No
  Sender: FDA-Public Use
  Company Number: US-TEVA-2021-US-1979519

PATIENT
  Age: 41 Year
  Sex: Male
  Weight: 83.01 kg

DRUGS (9)
  1. AJOVY [Suspect]
     Active Substance: FREMANEZUMAB-VFRM
     Indication: Migraine
     Dosage: FORM STRENGTH: 225/1.5 MG/ML
     Route: 065
     Dates: start: 202105
  2. AJOVY [Suspect]
     Active Substance: FREMANEZUMAB-VFRM
     Dosage: FORM STRENGTH:225/1.5 MG/ML
     Route: 065
     Dates: start: 20211027
  3. AJOVY [Suspect]
     Active Substance: FREMANEZUMAB-VFRM
     Dosage: FORM STRENGTH: 225/1.5 MG/ML
     Route: 065
     Dates: start: 202109, end: 202203
  4. EMGALITY [Suspect]
     Active Substance: GALCANEZUMAB-GNLM
     Indication: Product used for unknown indication
     Dosage: FOR 3 MONTHS
     Route: 065
  5. MAXALT [Concomitant]
     Active Substance: RIZATRIPTAN BENZOATE
     Indication: Product used for unknown indication
     Dosage: 1-2 PILLS EVERY DAY THIS OCCURRED FOR A TOTAL OF 7 TO 8 PILLS THAT WEEK
     Route: 065
  6. ZOLOFT [Concomitant]
     Active Substance: SERTRALINE HYDROCHLORIDE
     Indication: Product used for unknown indication
     Route: 065
  7. ZOLOFT [Concomitant]
     Active Substance: SERTRALINE HYDROCHLORIDE
     Route: 065
  8. MAGNESIUM [Concomitant]
     Active Substance: MAGNESIUM
     Indication: Product used for unknown indication
  9. NURTEC ODT [Concomitant]
     Active Substance: RIMEGEPANT SULFATE
     Indication: Product used for unknown indication
     Route: 065

REACTIONS (5)
  - Migraine [Recovered/Resolved]
  - Anxiety [Recovered/Resolved]
  - Palpitations [Unknown]
  - Musculoskeletal stiffness [Unknown]
  - Drug ineffective [Unknown]

NARRATIVE: CASE EVENT DATE: 20210101
